FAERS Safety Report 8871955 (Version 1)
Quarter: 2012Q4

REPORT INFORMATION
  Report Type: 
  Country: US (occurrence: US)
  Receive Date: 20121026
  Receipt Date: 20121026
  Transmission Date: 20130627
  Serious: No
  Sender: FDA-Public Use
  Company Number: US-AMGEN-USASP2012048906

PATIENT
  Age: 39 Year

DRUGS (1)
  1. ENBREL [Suspect]
     Indication: RHEUMATOID ARTHRITIS
     Dosage: 50 mg, qwk
     Dates: start: 20110720

REACTIONS (6)
  - Skeletal injury [Not Recovered/Not Resolved]
  - Road traffic accident [Not Recovered/Not Resolved]
  - Skin lesion [Not Recovered/Not Resolved]
  - Excoriation [Not Recovered/Not Resolved]
  - Impaired healing [Not Recovered/Not Resolved]
  - Urticaria [Recovered/Resolved]
